FAERS Safety Report 10039157 (Version 1)
Quarter: 2014Q1

REPORT INFORMATION
  Report Type: Report from Study
  Country: JP (occurrence: JP)
  Receive Date: 20140326
  Receipt Date: 20140326
  Transmission Date: 20141002
  Serious: Yes (Other)
  Sender: FDA-Public Use
  Company Number: PHHY2014JP033812

PATIENT
  Age: 57 Year
  Sex: Male
  Weight: 50 kg

DRUGS (21)
  1. LEPONEX / CLOZARIL [Suspect]
     Indication: SCHIZOPHRENIA, PARANOID TYPE
     Dosage: 12.5 MG, UNK
     Route: 048
     Dates: start: 20121219, end: 20121219
  2. LEPONEX / CLOZARIL [Suspect]
     Dosage: 25 MG, UNK
     Route: 048
     Dates: start: 20121220, end: 20121222
  3. LEPONEX / CLOZARIL [Suspect]
     Dosage: 50 MG, UNK
     Route: 048
     Dates: start: 20121223, end: 20121225
  4. LEPONEX / CLOZARIL [Suspect]
     Dosage: 75 MG, UNK
     Route: 048
     Dates: start: 20121226, end: 20121227
  5. LEPONEX / CLOZARIL [Suspect]
     Dosage: 100 MG, UNK
     Route: 048
     Dates: start: 20121228, end: 20121228
  6. LEPONEX / CLOZARIL [Suspect]
     Dosage: 125 MG, UNK
     Route: 048
     Dates: start: 20121229, end: 20130104
  7. LEPONEX / CLOZARIL [Suspect]
     Dosage: 150 MG, UNK
     Route: 048
     Dates: start: 20130105, end: 20130108
  8. LEPONEX / CLOZARIL [Suspect]
     Dosage: 175 MG, UNK
     Route: 048
     Dates: start: 20130109, end: 20130115
  9. LEPONEX / CLOZARIL [Suspect]
     Dosage: 200 MG, UNK
     Route: 048
     Dates: start: 20130116, end: 20130122
  10. LEPONEX / CLOZARIL [Suspect]
     Dosage: 225 MG, UNK
     Route: 048
     Dates: start: 20130123, end: 20130129
  11. LEPONEX / CLOZARIL [Suspect]
     Dosage: 250 MG, UNK
     Route: 048
     Dates: start: 20130130, end: 20130201
  12. MAJORPIN [Concomitant]
     Dosage: 200 MG, UNK
     Route: 048
     Dates: start: 20121219, end: 20121221
  13. LULLAN [Concomitant]
     Dosage: 32 MG, UNK
     Route: 048
     Dates: start: 20121219
  14. LULLAN [Concomitant]
     Dosage: 16 MG, UNK
     Route: 048
     Dates: end: 20121224
  15. CONTOMIN [Concomitant]
     Dosage: 50 MG, UNK
     Route: 048
     Dates: start: 20121219, end: 20121220
  16. BENZALIN [Concomitant]
     Indication: SCHIZOPHRENIA, PARANOID TYPE
     Dosage: 10 MG, UNK
     Route: 048
     Dates: start: 20121219
  17. MAGLAX [Concomitant]
     Indication: SCHIZOPHRENIA, PARANOID TYPE
     Dosage: 1340 MG, UNK
     Route: 048
     Dates: start: 20121219
  18. ACINON [Concomitant]
     Indication: PROPHYLAXIS
     Dosage: 150 MG, UNK
     Route: 048
     Dates: start: 20121219
  19. TAMSULOSIN HYDROCHLORIDE [Concomitant]
     Dosage: 0.2 MG, UNK
     Route: 048
     Dates: start: 20121219
  20. TASMOLIN [Concomitant]
     Indication: SCHIZOPHRENIA, PARANOID TYPE
     Dosage: 3 MG, UNK
     Route: 048
     Dates: start: 20121219
  21. LEUCON [Concomitant]
     Indication: PROPHYLAXIS
     Dosage: 30 MG, UNK
     Route: 048
     Dates: start: 20121219, end: 20130131

REACTIONS (5)
  - Liver disorder [Recovered/Resolved]
  - Malaise [Unknown]
  - Eosinophil percentage increased [Unknown]
  - Neutrophil percentage decreased [Unknown]
  - Red blood cell count decreased [Unknown]
